FAERS Safety Report 5214747-0 (Version None)
Quarter: 2007Q1

REPORT INFORMATION
  Report Type: 
  Country: None (occurrence: None)
  Receive Date: 20070122
  Receipt Date: 20070115
  Transmission Date: 20070707
  Serious: Yes (Hospitalization)
  Sender: FDA-Public Use
  Company Number: FR-SANOFI-SYNTHELABO-A02200700086

PATIENT
  Age: 40 Year
  Sex: Female
  Weight: 63 kg

DRUGS (2)
  1. ELOXATIN [Suspect]
     Indication: OVARIAN CANCER
     Route: 033
     Dates: start: 20061117, end: 20061117
  2. ELOXATIN [Suspect]
     Indication: METASTASES TO PERITONEUM
     Route: 033
     Dates: start: 20061117, end: 20061117

REACTIONS (1)
  - PERITONEAL HAEMORRHAGE [None]
